FAERS Safety Report 8203930-8 (Version None)
Quarter: 2012Q1

REPORT INFORMATION
  Report Type: 
  Country: None (occurrence: None)
  Receive Date: 20120313
  Receipt Date: 20120306
  Transmission Date: 20120608
  Serious: Yes (Other)
  Sender: FDA-Public Use
  Company Number: GB-UCBSA-052915

PATIENT
  Sex: Female

DRUGS (1)
  1. VIMPAT [Suspect]

REACTIONS (5)
  - EYE HAEMORRHAGE [None]
  - GINGIVAL BLEEDING [None]
  - TOOTH SOCKET HAEMORRHAGE [None]
  - EPISTAXIS [None]
  - BLOOD URINE PRESENT [None]
